FAERS Safety Report 4648261-8 (Version None)
Quarter: 2005Q2

REPORT INFORMATION
  Report Type: 
  Country: None (occurrence: None)
  Receive Date: 20050331
  Receipt Date: 20050208
  Transmission Date: 20051028
  Serious: No
  Sender: FDA-Public Use
  Company Number: 05P-163-0289943-00

PATIENT
  Age: 65 Year
  Sex: Female
  Weight: 56.6996 kg

DRUGS (9)
  1. HUMIRA [Suspect]
     Indication: RHEUMATOID ARTHRITIS
     Dosage: 40 MG, 1 IN 2 WK, SUBCUTANEOUS
     Route: 058
     Dates: start: 20030401, end: 20040101
  2. HUMIRA [Suspect]
     Indication: RHEUMATOID ARTHRITIS
     Dosage: 40 MG, 1 IN 2 WK, SUBCUTANEOUS
     Route: 058
     Dates: start: 20040101
  3. PREDNISONE [Concomitant]
  4. IBUPROFEN [Concomitant]
  5. VITAMIN CAP [Concomitant]
  6. ESOMEPRAZOLE [Concomitant]
  7. ASCORBIC ACID [Concomitant]
  8. TOCOPHEROL CONCENTRATE CAP [Concomitant]
  9. CALCIUM GLUCONATE [Concomitant]

REACTIONS (1)
  - LOCALISED INFECTION [None]
